FAERS Safety Report 19117247 (Version 1)
Quarter: 2021Q2

REPORT INFORMATION
  Report Type: Spontaneous
  Country: US (occurrence: US)
  Receive Date: 20210409
  Receipt Date: 20210409
  Transmission Date: 20210717
  Serious: Yes (Hospitalization, Other)
  Sender: FDA-Public Use
  Company Number: US-ASTRAZENECA-2021A271811

PATIENT
  Sex: Female
  Weight: 77.1 kg

DRUGS (3)
  1. CRESTOR [Suspect]
     Active Substance: ROSUVASTATIN CALCIUM
     Indication: BLOOD CHOLESTEROL
     Route: 048
  2. GENERIC ROSUVASTATIN [Suspect]
     Active Substance: ROSUVASTATIN
     Route: 065
  3. CRESTOR [Suspect]
     Active Substance: ROSUVASTATIN CALCIUM
     Indication: BLOOD CHOLESTEROL
     Dosage: HALF A 20 MG TABLET FOR A COUPLE WEEKS
     Route: 048

REACTIONS (9)
  - Arthritis [Unknown]
  - Arthralgia [Unknown]
  - Muscle discomfort [Recovering/Resolving]
  - Myalgia [Not Recovered/Not Resolved]
  - Pain in extremity [Unknown]
  - Seizure [Unknown]
  - Sensory disturbance [Not Recovered/Not Resolved]
  - Fall [Recovered/Resolved]
  - Loss of consciousness [Unknown]
